FAERS Safety Report 6678574-X (Version None)
Quarter: 2010Q2

REPORT INFORMATION
  Report Type: 
  Country: None (occurrence: None)
  Receive Date: 20100409
  Receipt Date: 20100409
  Transmission Date: 20101027
  Serious: Yes (Hospitalization)
  Sender: FDA-Public Use
  Company Number: None

PATIENT
  Age: 67 Year
  Sex: Female
  Weight: 84.9 kg

DRUGS (2)
  1. LENALIDOMIDE [Suspect]
     Indication: COLON CANCER METASTATIC
     Dosage: 15 MG PO EACH DAY
     Route: 048
     Dates: start: 20100119, end: 20100129
  2. CETUXIMAB [Suspect]

REACTIONS (2)
  - PLATELET COUNT DECREASED [None]
  - UROSEPSIS [None]
